FAERS Safety Report 16959326 (Version 4)
Quarter: 2020Q2

REPORT INFORMATION
  Report Type: Other
  Country: GB (occurrence: GB)
  Receive Date: 20191025
  Receipt Date: 20200506
  Transmission Date: 20200713
  Serious: Yes (Other)
  Sender: FDA-Public Use
  Company Number: GB-CELLTRION INC.-2019GB025762

PATIENT

DRUGS (18)
  1. REMSIMA [Suspect]
     Active Substance: INFLIXIMAB
     Dosage: 235 MG, UNK
     Route: 065
  2. SODIUM CHLORIDE INTRAVENOUS INFUSION BP 0.9% W/V [Suspect]
     Active Substance: SODIUM CHLORIDE
     Dosage: UNK
     Route: 065
  3. SODIUM CHLORIDE INTRAVENOUS INFUSION BP 0.9% W/V [Suspect]
     Active Substance: SODIUM CHLORIDE
     Dosage: UNK
     Route: 065
  4. REMSIMA [Suspect]
     Active Substance: INFLIXIMAB
     Indication: PRODUCT USED FOR UNKNOWN INDICATION
     Dosage: 235 MG, UNK
     Route: 065
  5. REMSIMA [Suspect]
     Active Substance: INFLIXIMAB
     Dosage: 235 MG, UNK
     Route: 065
  6. SODIUM CHLORIDE INTRAVENOUS INFUSION BP 0.9% W/V [Suspect]
     Active Substance: SODIUM CHLORIDE
     Dosage: UNK
     Route: 065
  7. WATER FOR INJECTION [Suspect]
     Active Substance: WATER
     Indication: MEDICATION DILUTION
     Dosage: UNK
     Route: 065
  8. SODIUM CHLORIDE INTRAVENOUS INFUSION BP 0.9% W/V [Suspect]
     Active Substance: SODIUM CHLORIDE
     Dosage: UNK
     Route: 065
  9. WATER FOR INJECTION [Suspect]
     Active Substance: WATER
     Dosage: UNK
     Route: 065
  10. WATER FOR INJECTION [Suspect]
     Active Substance: WATER
     Dosage: UNK
     Route: 065
  11. REMSIMA [Suspect]
     Active Substance: INFLIXIMAB
     Dosage: 235 MG, UNK
     Route: 065
  12. REMSIMA [Suspect]
     Active Substance: INFLIXIMAB
     Dosage: 235 MG, UNK
     Route: 065
  13. REMSIMA [Suspect]
     Active Substance: INFLIXIMAB
     Dosage: 235 MG, UNK
     Route: 065
  14. SODIUM CHLORIDE INTRAVENOUS INFUSION BP 0.9% W/V [Suspect]
     Active Substance: SODIUM CHLORIDE
     Indication: MEDICATION DILUTION
     Dosage: UNK
     Route: 065
  15. WATER FOR INJECTION [Suspect]
     Active Substance: WATER
     Dosage: UNK
     Route: 065
  16. SODIUM CHLORIDE INTRAVENOUS INFUSION BP 0.9% W/V [Suspect]
     Active Substance: SODIUM CHLORIDE
     Dosage: UNK
     Route: 065
  17. WATER FOR INJECTION [Suspect]
     Active Substance: WATER
     Dosage: UNK
     Route: 065
  18. WATER FOR INJECTION [Suspect]
     Active Substance: WATER
     Dosage: UNK
     Route: 065

REACTIONS (6)
  - Weight increased [Unknown]
  - Abdominal pain [Unknown]
  - Nephrolithiasis [Unknown]
  - Diarrhoea [Unknown]
  - Malaise [Unknown]
  - Nasopharyngitis [Unknown]
